FAERS Safety Report 5055886-7 (Version None)
Quarter: 2006Q3

REPORT INFORMATION
  Report Type: 
  Country: None (occurrence: None)
  Receive Date: 20060717
  Receipt Date: 20060701
  Transmission Date: 20061208
  Serious: Yes (Other)
  Sender: FDA-Public Use
  Company Number: 163-20785-06070219

PATIENT

DRUGS (1)
  1. THALOMID [Suspect]
     Indication: MYELODYSPLASTIC SYNDROME
     Dosage: 200 MG X1 WK, THEN INCREASED BY BY 50 MG ON A WEEKLY BASES AS TOLERATED: UP TO 1000 MG, QD, ORAL
     Route: 048
     Dates: start: 20011123, end: 20040926

REACTIONS (3)
  - CRANIAL NEUROPATHY [None]
  - HAEMOGLOBIN DECREASED [None]
  - PLATELET COUNT DECREASED [None]
